FAERS Safety Report 5724834-6 (Version None)
Quarter: 2008Q2

REPORT INFORMATION
  Report Type: 
  Country: None (occurrence: None)
  Receive Date: 20080430
  Receipt Date: 20080430
  Transmission Date: 20081010
  Serious: Yes (Hospitalization, Disabling)
  Sender: FDA-Public Use
  Company Number: None

PATIENT
  Age: 69 Year
  Sex: Male

DRUGS (1)
  1. PREDNISONE TAB [Suspect]
     Dosage: 15 MG EVERY DAY PO
     Route: 048
     Dates: start: 20000725

REACTIONS (2)
  - OSTEOPOROSIS [None]
  - SPINAL COMPRESSION FRACTURE [None]
